FAERS Safety Report 9741289 (Version 1)
Quarter: 2013Q4

REPORT INFORMATION
  Report Type: Spontaneous
  Country: US (occurrence: US)
  Receive Date: 20131209
  Receipt Date: 20131209
  Transmission Date: 20140711
  Serious: No
  Sender: FDA-Public Use
  Company Number: US-BIOGENIDEC-2013BI102191

PATIENT
  Age: 66 Year
  Sex: Female

DRUGS (12)
  1. TECFIDERA [Suspect]
     Indication: MULTIPLE SCLEROSIS
     Route: 048
     Dates: start: 20130926
  2. TECFIDERA [Suspect]
     Indication: MULTIPLE SCLEROSIS
     Route: 048
     Dates: start: 201309, end: 20131022
  3. NASONEX [Concomitant]
  4. METANX [Concomitant]
  5. ALLEGRA [Concomitant]
  6. ZOCOR [Concomitant]
  7. FLECTOR [Concomitant]
  8. EXCEDRIN MIGRAINE [Concomitant]
  9. CALCIUM 500 [Concomitant]
  10. ALPHA LIPOIC ACID [Concomitant]
  11. VITAMIN D [Concomitant]
  12. NEXIUM [Concomitant]

REACTIONS (3)
  - Nausea [Recovered/Resolved]
  - Vomiting [Recovered/Resolved]
  - Abdominal pain upper [Recovered/Resolved]
